FAERS Safety Report 13117237 (Version 2)
Quarter: 2017Q1

REPORT INFORMATION
  Report Type: Spontaneous
  Country: US (occurrence: US)
  Receive Date: 20170116
  Receipt Date: 20170223
  Transmission Date: 20170428
  Serious: Yes (Other)
  Sender: FDA-Public Use
  Company Number: US-AMGEN-USASP2017004397

PATIENT
  Sex: Female

DRUGS (3)
  1. FORTEO [Concomitant]
     Active Substance: TERIPARATIDE
     Dosage: UNK
  2. 5 FLUOROURACIL [Suspect]
     Active Substance: FLUOROURACIL
     Indication: PRECANCEROUS SKIN LESION
     Dosage: UNK
     Route: 065
  3. PROLIA [Suspect]
     Active Substance: DENOSUMAB
     Indication: OSTEOPOROSIS POSTMENOPAUSAL
     Dosage: UNK
     Route: 065

REACTIONS (9)
  - Back pain [Unknown]
  - Femur fracture [Unknown]
  - Fall [Unknown]
  - Rash pustular [Unknown]
  - Bone density decreased [Unknown]
  - Precancerous skin lesion [Unknown]
  - Skin irritation [Unknown]
  - Arthralgia [Unknown]
  - Erythema [Unknown]

NARRATIVE: CASE EVENT DATE: 201505
